FAERS Safety Report 19560706 (Version 1)
Quarter: 2021Q3

REPORT INFORMATION
  Report Type: Spontaneous
  Country: US (occurrence: US)
  Receive Date: 20210715
  Receipt Date: 20210715
  Transmission Date: 20211014
  Serious: No
  Sender: FDA-Public Use
  Company Number: US-TITAN PHARMACEUTICALS-2020TAN00072

PATIENT
  Age: 31 Year
  Sex: Female
  Weight: 113.38 kg

DRUGS (8)
  1. PERMETHRIN. [Concomitant]
     Active Substance: PERMETHRIN
     Dosage: ONE APPLICATION, 2X/WEEK
  2. LAMICTAL [Concomitant]
     Active Substance: LAMOTRIGINE
     Dosage: 25 MG, 2X/DAY
  3. PROBUPHINE [Suspect]
     Active Substance: BUPRENORPHINE HYDROCHLORIDE
     Dosage: 1 ROD, IN LEFT ARM
     Dates: start: 20200312
  4. METOPROLOL TARTRATE. [Concomitant]
     Active Substance: METOPROLOL TARTRATE
     Dosage: 25 MG, 2X/DAY
  5. FAMOTIDINE. [Concomitant]
     Active Substance: FAMOTIDINE
     Dosage: 20 MG, AT BEDTIME AS NEEDED
  6. PROBUPHINE [Suspect]
     Active Substance: BUPRENORPHINE HYDROCHLORIDE
     Dosage: 4 RODS, INSERTED IN LEFT ARM
     Dates: start: 20200312, end: 20201209
  7. PREGABALIN. [Concomitant]
     Active Substance: PREGABALIN
     Dosage: 200 MG, 3X/DAY
  8. HYDROXYZINE HYDROCHLORIDE. [Concomitant]
     Active Substance: HYDROXYZINE HYDROCHLORIDE
     Dosage: 25 MG, EVERY 8 HOURS AS NEEDED

REACTIONS (2)
  - Complication of device removal [Unknown]
  - Incorrect product administration duration [Unknown]

NARRATIVE: CASE EVENT DATE: 20200912
